FAERS Safety Report 21746171 (Version 2)
Quarter: 2022Q4

REPORT INFORMATION
  Report Type: Other
  Country: PH (occurrence: None)
  Receive Date: 20221219
  Receipt Date: 20221223
  Transmission Date: 20230113
  Serious: Yes (Death)
  Sender: FDA-Public Use
  Company Number: PH-ROCHE-3245664

PATIENT
  Age: 66 Year
  Sex: Female

DRUGS (1)
  1. AVASTIN [Suspect]
     Active Substance: BEVACIZUMAB
     Indication: Colorectal cancer metastatic
     Dosage: MORE DOSAGE INFORMATION AVASTIN 100 MG 2 VIALS, FORMULATION: VIALS
     Route: 042

REACTIONS (2)
  - Neoplasm malignant [Fatal]
  - SARS-CoV-2 test positive [Unknown]

NARRATIVE: CASE EVENT DATE: 20221125
